FAERS Safety Report 9434930 (Version 4)
Quarter: 2013Q3

REPORT INFORMATION
  Report Type: Spontaneous
  Country: DE (occurrence: US)
  Receive Date: 20130801
  Receipt Date: 20130828
  Transmission Date: 20140515
  Serious: Yes (Death, Disabling)
  Sender: FDA-Public Use
  Company Number: US-BRACCO-005113

PATIENT
  Sex: Female
  Weight: 149 kg

DRUGS (23)
  1. PROHANCE [Suspect]
     Indication: NUCLEAR MAGNETIC RESONANCE IMAGING
     Dates: start: 20070511, end: 20070511
  2. MULTIHANCE [Suspect]
     Indication: NUCLEAR MAGNETIC RESONANCE IMAGING
     Route: 042
     Dates: start: 20080304, end: 20080304
  3. PROCRIT [Concomitant]
  4. AMITRIPTYLINE [Concomitant]
  5. RENAGEL [Concomitant]
  6. SENSIPAR [Concomitant]
  7. FOSRENOL [Concomitant]
  8. HUMALOG [Concomitant]
  9. COREG [Concomitant]
  10. EPOGEN [Concomitant]
  11. CLONIDINE [Concomitant]
  12. PHOSLO [Concomitant]
  13. ASPIRIN [Concomitant]
  14. LANTUS [Concomitant]
  15. NORVASC [Concomitant]
  16. ALTACE [Concomitant]
  17. ROCALTROL [Concomitant]
  18. DIOVAN [Concomitant]
  19. IRON [Concomitant]
  20. MAGNEVIST [Suspect]
     Indication: ANGIOGRAM
     Dates: start: 20030913, end: 20030913
  21. PROHANCE [Suspect]
     Indication: NUCLEAR MAGNETIC RESONANCE IMAGING
     Dates: start: 20071109, end: 20071109
  22. PROHANCE [Suspect]
     Indication: ANGIOGRAM
     Dates: start: 20070511, end: 20070511
  23. PROHANCE [Suspect]
     Indication: NUCLEAR MAGNETIC RESONANCE IMAGING ABDOMINAL
     Dates: start: 20071109, end: 20071109

REACTIONS (5)
  - Nephrogenic systemic fibrosis [Fatal]
  - Depression [Unknown]
  - Depressed mood [Unknown]
  - Stress [Unknown]
  - Emotional distress [Unknown]
